FAERS Safety Report 8494165-2 (Version None)
Quarter: 2012Q3

REPORT INFORMATION
  Report Type: 
  Country: None (occurrence: None)
  Receive Date: 20120709
  Receipt Date: 20120629
  Transmission Date: 20120928
  Serious: Yes (Other)
  Sender: FDA-Public Use
  Company Number: PHEH2012US013358

PATIENT
  Sex: Male
  Weight: 84.807 kg

DRUGS (2)
  1. GLEEVEC [Suspect]
     Dates: start: 20040401
  2. GLEEVEC [Suspect]
     Indication: CHRONIC MYELOID LEUKAEMIA
     Dosage: 600 MG, DAILY
     Dates: start: 20020201, end: 20040101

REACTIONS (7)
  - VENOUS THROMBOSIS [None]
  - ANAEMIA [None]
  - VITAMIN B12 DECREASED [None]
  - CHRONIC OBSTRUCTIVE PULMONARY DISEASE [None]
  - THROMBOCYTOPENIA [None]
  - DIARRHOEA [None]
  - DYSPNOEA [None]
